FAERS Safety Report 20569407 (Version 2)
Quarter: 2022Q1

REPORT INFORMATION
  Report Type: Spontaneous
  Country: ES (occurrence: ES)
  Receive Date: 20220308
  Receipt Date: 20220317
  Transmission Date: 20220423
  Serious: Yes (Death, Hospitalization, Other)
  Sender: FDA-Public Use
  Company Number: ES-CELLTRION INC.-2022ES002679

PATIENT

DRUGS (4)
  1. RITUXIMAB [Suspect]
     Active Substance: RITUXIMAB
     Indication: Rheumatoid arthritis-associated interstitial lung disease
     Dosage: 1000 MG ON DAYS 1 AND 15 EVERY 6 MONTHS OR MORE DEPENDING ON PULMONARY OR JOINT SYMPTOMS AND SERUM I
     Route: 042
  2. RITUXIMAB [Suspect]
     Active Substance: RITUXIMAB
     Dosage: 1000 MG ON DAYS 1 AND 15 EVERY 6 MONTHS OR MORE DEPENDING ON PULMONARY OR JOINT SYMPTOMS AND SERUM I
     Route: 042
  3. HYDROXYCHLOROQUINE [Suspect]
     Active Substance: HYDROXYCHLOROQUINE
     Indication: Rheumatoid arthritis
     Route: 065
  4. METHYLPREDNISOLONE [Concomitant]
     Active Substance: METHYLPREDNISOLONE
     Indication: Premedication
     Dosage: 100 MG
     Route: 042

REACTIONS (4)
  - Disease progression [Fatal]
  - Interstitial lung disease [Fatal]
  - Pneumonia [Fatal]
  - Off label use [Unknown]
